FAERS Safety Report 8495708-5 (Version None)
Quarter: 2012Q3

REPORT INFORMATION
  Report Type: 
  Country: None (occurrence: None)
  Receive Date: 20120709
  Receipt Date: 20120706
  Transmission Date: 20120928
  Serious: Yes (Other)
  Sender: FDA-Public Use
  Company Number: US-PFIZER INC-2012162718

PATIENT
  Sex: Male

DRUGS (1)
  1. CHANTIX [Suspect]
     Dosage: UNK
     Route: 048
     Dates: start: 20120101, end: 20120101

REACTIONS (5)
  - MOOD SWINGS [None]
  - PHARYNGITIS [None]
  - HALLUCINATION [None]
  - ANGER [None]
  - INSOMNIA [None]
